FAERS Safety Report 6122407-7 (Version None)
Quarter: 2009Q1

REPORT INFORMATION
  Report Type: 
  Country: None (occurrence: None)
  Receive Date: 20090318
  Receipt Date: 20090120
  Transmission Date: 20090719
  Serious: No
  Sender: FDA-Public Use
  Company Number: US-ASTRAZENECA-2009UW01699

PATIENT
  Age: 21393 Day
  Sex: Female
  Weight: 78 kg

DRUGS (1)
  1. SYMBICORT [Suspect]
     Indication: ASTHMA
     Dosage: 2 PUFFS TWO TIMES A DAY
     Route: 055
     Dates: start: 20090112

REACTIONS (3)
  - BODY TEMPERATURE FLUCTUATION [None]
  - HEART RATE INCREASED [None]
  - INSOMNIA [None]
